FAERS Safety Report 6276096-1 (Version None)
Quarter: 2009Q3

REPORT INFORMATION
  Report Type: 
  Country: None (occurrence: None)
  Receive Date: 20090722
  Receipt Date: 20070512
  Transmission Date: 20100115
  Serious: Yes (Hospitalization, Other)
  Sender: FDA-Public Use
  Company Number: US-ASTRAZENECA-2006UW07969

PATIENT
  Age: 51 Year
  Sex: Female
  Weight: 70.3 kg

DRUGS (20)
  1. SEROQUEL [Suspect]
     Indication: SCHIZOPHRENIA
     Dosage: 25 - 750 MG
     Route: 048
     Dates: start: 20001025
  2. SEROQUEL [Suspect]
     Indication: BIPOLAR DISORDER
     Dosage: 25 - 750 MG
     Route: 048
     Dates: start: 20001025
  3. SEROQUEL [Suspect]
     Indication: DEPRESSION
     Dosage: 25 - 750 MG
     Route: 048
     Dates: start: 20001025
  4. SEROQUEL [Suspect]
     Dosage: 25 MG - 100 MG
     Route: 048
     Dates: start: 20001101, end: 20050701
  5. SEROQUEL [Suspect]
     Dosage: 25 MG - 100 MG
     Route: 048
     Dates: start: 20001101, end: 20050701
  6. SEROQUEL [Suspect]
     Dosage: 25 MG - 100 MG
     Route: 048
     Dates: start: 20001101, end: 20050701
  7. SEROQUEL [Suspect]
     Route: 048
     Dates: start: 20001101, end: 20050701
  8. SEROQUEL [Suspect]
     Route: 048
     Dates: start: 20001101, end: 20050701
  9. SEROQUEL [Suspect]
     Route: 048
     Dates: start: 20001101, end: 20050701
  10. ABILIFY [Concomitant]
     Dosage: 5 TO 25 MG
     Dates: start: 20000101
  11. GEODON [Concomitant]
     Dosage: 5 TO 25 MG
     Dates: start: 20000101
  12. RISPERDAL [Concomitant]
     Dosage: 5 TO 25 MG
     Dates: start: 20000101
  13. ZYPREXA [Concomitant]
     Dosage: 5 TO 25 MG
     Dates: start: 20000101
  14. MECLIZINE [Concomitant]
     Indication: HEADACHE
     Dosage: 25 - 50 MG
     Route: 048
     Dates: start: 20020315
  15. MECLIZINE [Concomitant]
     Indication: DIZZINESS
     Dosage: 25 - 50 MG
     Route: 048
     Dates: start: 20020315
  16. LIPITOR [Concomitant]
     Route: 048
     Dates: start: 20020315
  17. ATIVAN [Concomitant]
     Dosage: 1 - 2 MG
     Route: 048
     Dates: start: 20001025
  18. CELEXA [Concomitant]
     Dosage: 20 - 40 MG
     Route: 048
     Dates: start: 20001025
  19. NORVASC [Concomitant]
     Indication: HYPERTENSION
     Dosage: 5 - 10 MG
     Route: 048
     Dates: start: 20020315
  20. SERZONE [Concomitant]
     Route: 048
     Dates: start: 20020315

REACTIONS (8)
  - ANXIETY [None]
  - BIPOLAR DISORDER [None]
  - DIABETES MELLITUS [None]
  - DIABETES MELLITUS INADEQUATE CONTROL [None]
  - GLUCOSE TOLERANCE IMPAIRED [None]
  - HYPERGLYCAEMIA [None]
  - HYPOGLYCAEMIA [None]
  - SUICIDAL IDEATION [None]
